FAERS Safety Report 7117566-3 (Version None)
Quarter: 2010Q4

REPORT INFORMATION
  Report Type: 
  Country: None (occurrence: None)
  Receive Date: 20101122
  Receipt Date: 20101111
  Transmission Date: 20110411
  Serious: Yes (Other)
  Sender: FDA-Public Use
  Company Number: US-PFIZER INC-2010146464

PATIENT
  Sex: Female
  Weight: 95.238 kg

DRUGS (5)
  1. EFFEXOR [Suspect]
     Indication: DEPRESSION
     Dosage: 75 MG, DAILY
     Route: 048
     Dates: start: 20070301
  2. EFFEXOR [Suspect]
     Dosage: 150 MG, 1X/DAY
  3. PERCOCET [Concomitant]
     Dosage: UNK
     Dates: end: 20100901
  4. CYMBALTA [Concomitant]
     Dosage: 30 MG, UNK
     Dates: end: 20100901
  5. SOMA [Concomitant]
     Dosage: 350 MG, 3X/DAY
     Dates: end: 20100901

REACTIONS (4)
  - FIBROMYALGIA [None]
  - HYPERTENSION [None]
  - INAPPROPRIATE SCHEDULE OF DRUG ADMINISTRATION [None]
  - OSTEOARTHRITIS [None]
